FAERS Safety Report 7457327-9 (Version None)
Quarter: 2011Q2

REPORT INFORMATION
  Report Type: 
  Country: None (occurrence: None)
  Receive Date: 20110504
  Receipt Date: 20100527
  Transmission Date: 20111010
  Serious: No
  Sender: FDA-Public Use
  Company Number: US-KINGPHARMUSA00001-K201000665

PATIENT
  Sex: Male

DRUGS (3)
  1. AVINZA [Suspect]
     Dosage: 30 MG, UNK
  2. AVINZA [Suspect]
     Dosage: 75 MG, BID
  3. AVINZA [Suspect]
     Dosage: 90 MG, BID

REACTIONS (6)
  - VOMITING [None]
  - NAUSEA [None]
  - HYPERHIDROSIS [None]
  - DIPLOPIA [None]
  - HEAT EXHAUSTION [None]
  - DIZZINESS [None]
